FAERS Safety Report 9383308 (Version 3)
Quarter: 2013Q3

REPORT INFORMATION
  Report Type: Spontaneous
  Country: US (occurrence: US)
  Receive Date: 20130704
  Receipt Date: 20130730
  Transmission Date: 20140515
  Serious: No
  Sender: FDA-Public Use
  Company Number: US-009507513-1307USA002122

PATIENT
  Age: 23 Year
  Sex: Female

DRUGS (1)
  1. IMPLANON [Suspect]
     Indication: CONTRACEPTION
     Dosage: UNK
     Route: 059
     Dates: start: 20120314, end: 20130625

REACTIONS (4)
  - Device difficult to use [Recovering/Resolving]
  - Implant site pain [Recovering/Resolving]
  - Device breakage [Recovering/Resolving]
  - Product quality issue [Unknown]
